FAERS Safety Report 8585883-6 (Version None)
Quarter: 2012Q3

REPORT INFORMATION
  Report Type: 
  Country: None (occurrence: None)
  Receive Date: 20120802
  Receipt Date: 20120802
  Transmission Date: 20120928
  Serious: Yes (Death, Life-Threatening, Hospitalization, Disabling)
  Sender: FDA-Public Use
  Company Number: None

PATIENT

DRUGS (1)
  1. ROBITUSSIN AND SUCH COLD AND COUGH [Suspect]

REACTIONS (1)
  - NO ADVERSE EVENT [None]
